FAERS Safety Report 5108327-5 (Version None)
Quarter: 2006Q3

REPORT INFORMATION
  Report Type: 
  Country: None (occurrence: None)
  Receive Date: 20060914
  Receipt Date: 20060914
  Transmission Date: 20061208
  Serious: Yes (Life-Threatening, Hospitalization)
  Sender: FDA-Public Use
  Company Number: None

PATIENT
  Age: 65 Year
  Sex: Female
  Weight: 63.5036 kg

DRUGS (2)
  1. CELEBREX [Suspect]
     Indication: ARTHRITIS
     Dates: start: 19990101, end: 20060203
  2. CELEBREX [Suspect]
     Indication: EXOSTOSIS
     Dates: start: 19990101, end: 20060203

REACTIONS (1)
  - CEREBROVASCULAR ACCIDENT [None]
